FAERS Safety Report 7041656-7 (Version None)
Quarter: 2010Q4

REPORT INFORMATION
  Report Type: 
  Country: None (occurrence: None)
  Receive Date: 20101013
  Receipt Date: 20100217
  Transmission Date: 20110411
  Serious: Yes (Other)
  Sender: FDA-Public Use
  Company Number: US-ASTRAZENECA-2010SE06946

PATIENT
  Age: 847 Month
  Sex: Female

DRUGS (1)
  1. SYMBICORT [Suspect]
     Dosage: 2 PUFFS
     Route: 055
     Dates: start: 20090101

REACTIONS (1)
  - CATARACT OPERATION [None]
